FAERS Safety Report 10013723 (Version 2)
Quarter: 2014Q2

REPORT INFORMATION
  Report Type: Spontaneous
  Country: US (occurrence: US)
  Receive Date: 20140316
  Receipt Date: 20140605
  Transmission Date: 20141212
  Serious: Yes (Other)
  Sender: FDA-Public Use
  Company Number: US-BAYER-2014-036744

PATIENT
  Age: 25 Year
  Sex: Female
  Weight: 79 kg

DRUGS (6)
  1. MIRENA [Suspect]
     Indication: CONTRACEPTION
     Dosage: 20 MCG/24HR, CONT
     Route: 015
     Dates: start: 2008, end: 20140306
  2. MIRENA [Suspect]
     Indication: MENORRHAGIA
  3. VITAMIN D [Concomitant]
     Dosage: 5000 U, ONCE
  4. B12 [Concomitant]
  5. NAPROSYN [Concomitant]
     Dosage: UNK UNK, BID
     Dates: start: 20140219
  6. ULTRAM [Concomitant]
     Dosage: 50 MG, PRN
     Dates: start: 20140219

REACTIONS (13)
  - Uterine perforation [Recovered/Resolved]
  - Abdominal pain lower [Recovered/Resolved]
  - Pelvic pain [Recovered/Resolved]
  - Device dislocation [Recovered/Resolved]
  - Medication error [None]
  - Menorrhagia [None]
  - Pain [None]
  - Dysmenorrhoea [None]
  - Vaginal discharge [None]
  - Device difficult to use [None]
  - Ovarian cyst [None]
  - Pelvic adhesions [None]
  - Endometriosis [None]
